FAERS Safety Report 9231493 (Version 1)
Quarter: 2013Q2

REPORT INFORMATION
  Report Type: Report from Study
  Country: JP (occurrence: JP)
  Receive Date: 20130415
  Receipt Date: 20130415
  Transmission Date: 20140414
  Serious: Yes (Hospitalization)
  Sender: FDA-Public Use
  Company Number: JP-009507513-1207JPN000072

PATIENT
  Age: 60 Year
  Sex: Female
  Weight: 60 kg

DRUGS (7)
  1. PEGINTRON [Suspect]
     Indication: CHRONIC HEPATITIS C
     Dosage: 1.3 MICROGRAM PER KILOGRAM, QW
     Route: 058
     Dates: start: 20120619, end: 20120620
  2. REBETOL [Suspect]
     Indication: CHRONIC HEPATITIS C
     Dosage: 600 MG, QD
     Route: 048
     Dates: start: 20120619, end: 20120620
  3. TELAPREVIR [Suspect]
     Indication: CHRONIC HEPATITIS C
     Dosage: 2250 MG, QD
     Route: 048
     Dates: start: 20120619, end: 20120620
  4. CALBLOCK [Concomitant]
     Indication: HYPERTENSION
     Dosage: 16 MG, ONCE
     Route: 048
  5. BLOPRESS [Concomitant]
     Indication: HYPERTENSION
     Dosage: 8 MG, ONCE
     Route: 048
  6. SELOKEN [Concomitant]
     Indication: HYPERTENSION
     Dosage: 120 MG, ONCE
     Route: 048
  7. CARDENALIN [Concomitant]
     Indication: HYPERTENSION
     Dosage: 1 MG, ONCE
     Route: 048

REACTIONS (5)
  - Nausea [Recovered/Resolved]
  - Vomiting [Recovered/Resolved]
  - Renal impairment [Recovering/Resolving]
  - Hyperuricaemia [Recovering/Resolving]
  - Hepatic function abnormal [Recovered/Resolved]
